FAERS Safety Report 8531953-8 (Version None)
Quarter: 2012Q3

REPORT INFORMATION
  Report Type: 
  Country: None (occurrence: None)
  Receive Date: 20120723
  Receipt Date: 20120712
  Transmission Date: 20120928
  Serious: Yes (Other)
  Sender: FDA-Public Use
  Company Number: FR-FRI-1000037257

PATIENT
  Age: 57 Year
  Sex: Male

DRUGS (1)
  1. ESCITALOPRAM [Suspect]
     Dosage: 10 MG
     Route: 048
     Dates: start: 20120522, end: 20120523

REACTIONS (3)
  - MAJOR DEPRESSION [None]
  - GENERALISED ANXIETY DISORDER [None]
  - ANXIETY [None]
